FAERS Safety Report 6119791-7 (Version None)
Quarter: 2009Q1

REPORT INFORMATION
  Report Type: 
  Country: None (occurrence: None)
  Receive Date: 20090316
  Receipt Date: 20090305
  Transmission Date: 20090719
  Serious: Yes (Hospitalization)
  Sender: FDA-Public Use
  Company Number: FR-PFIZER INC-2009181669

PATIENT

DRUGS (7)
  1. TRIFLUCAN [Suspect]
     Dosage: 400 MG, 1X/DAY
     Route: 042
     Dates: start: 20081211, end: 20081214
  2. INIPOMP [Suspect]
     Dosage: 40 MG, 1X/DAY
     Route: 048
     Dates: start: 20080101, end: 20081230
  3. PLAVIX [Concomitant]
  4. KARDEGIC [Concomitant]
  5. DETENSIEL [Concomitant]
  6. TAHOR [Concomitant]
  7. SULFARLEM [Concomitant]

REACTIONS (2)
  - CONFUSIONAL STATE [None]
  - HALLUCINATION [None]
